FAERS Safety Report 21789949 (Version 1)
Quarter: 2022Q4

REPORT INFORMATION
  Report Type: Spontaneous
  Country: CN (occurrence: CN)
  Receive Date: 20221228
  Receipt Date: 20221228
  Transmission Date: 20230113
  Serious: Yes (Congenital Anomaly, Other)
  Sender: FDA-Public Use
  Company Number: CN-PFIZER INC-PV202200131030

PATIENT
  Age: 45 Year
  Sex: Male
  Weight: 61 kg

DRUGS (5)
  1. LINEZOLID [Suspect]
     Active Substance: LINEZOLID
     Indication: Therapeutic procedure
     Dosage: 600 MG, 2X/DAY
     Route: 048
     Dates: start: 20220723, end: 20221120
  2. RIFAPENTINE [Concomitant]
     Active Substance: RIFAPENTINE
     Indication: Therapeutic procedure
     Dosage: 0.6 G, 2X/WEEK
     Route: 048
     Dates: start: 20220617, end: 20221120
  3. PYRAZINAMIDE [Concomitant]
     Active Substance: PYRAZINAMIDE
     Indication: Therapeutic procedure
     Dosage: 1.5 G, 1X/DAY
     Route: 048
     Dates: start: 20220704, end: 20221120
  4. ISONIAZID [Concomitant]
     Active Substance: ISONIAZID
     Indication: Therapeutic procedure
     Dosage: 0.3 G, 1X/DAY
     Route: 048
     Dates: start: 20220617, end: 20221120
  5. ETHAMBUTOL HYDROCHLORIDE [Concomitant]
     Active Substance: ETHAMBUTOL HYDROCHLORIDE
     Indication: Therapeutic procedure
     Dosage: 0.75 G, 1X/DAY
     Route: 048
     Dates: start: 20220617, end: 20221120

REACTIONS (17)
  - Altered state of consciousness [Unknown]
  - Lactic acidosis [Recovering/Resolving]
  - Hypoglycaemia [Unknown]
  - Platelet count decreased [Recovering/Resolving]
  - Loss of consciousness [Unknown]
  - Delirium [Unknown]
  - Hypotension [Recovering/Resolving]
  - Dysarthria [Unknown]
  - Dyspnoea [Unknown]
  - Heart rate increased [Unknown]
  - Cold sweat [Unknown]
  - Feeling cold [Unknown]
  - PO2 decreased [Unknown]
  - Haemoglobin decreased [Unknown]
  - Blood calcium decreased [Unknown]
  - Off label use [Unknown]
  - Product use issue [Unknown]

NARRATIVE: CASE EVENT DATE: 20220723
